FAERS Safety Report 9062021 (Version 2)
Quarter: 2015Q1

REPORT INFORMATION
  Report Type: Spontaneous
  Country: US (occurrence: US)
  Receive Date: 20130127
  Receipt Date: 20150121
  Transmission Date: 20150721
  Serious: No
  Sender: FDA-Public Use
  Company Number: US-ASTRAZENECA-2013SE03878

PATIENT
  Age: 82 Year
  Sex: Female
  Weight: 53.1 kg

DRUGS (13)
  1. TOPROL XL [Suspect]
     Active Substance: METOPROLOL SUCCINATE
     Indication: BLOOD PRESSURE ABNORMAL
     Route: 048
     Dates: start: 20120311
  2. ZETIA [Suspect]
     Active Substance: EZETIMIBE
     Route: 065
     Dates: start: 201203
  3. TOPROL XL [Suspect]
     Active Substance: METOPROLOL SUCCINATE
     Indication: BLOOD PRESSURE ABNORMAL
     Dosage: 25 MG, EVERYDAY, (GENERIC)
     Route: 048
     Dates: start: 20120311
  4. BRILINTA [Suspect]
     Active Substance: TICAGRELOR
     Indication: STENT PLACEMENT
     Route: 048
     Dates: start: 20120311
  5. PHENERGAN [Concomitant]
     Active Substance: PROMETHAZINE HYDROCHLORIDE
     Indication: NAUSEA
     Route: 065
  6. MULTIVITAMIN WITH OMEGA 3 [Concomitant]
     Route: 065
  7. BRILINTA [Suspect]
     Active Substance: TICAGRELOR
     Indication: ARTERIAL OCCLUSIVE DISEASE
     Route: 048
     Dates: start: 20120311
  8. PRINOVIL [Concomitant]
     Indication: BLOOD PRESSURE ABNORMAL
     Route: 065
  9. ACIDCOL [Concomitant]
     Route: 065
  10. LOMOTIL [Concomitant]
     Active Substance: ATROPINE SULFATE\DIPHENOXYLATE HYDROCHLORIDE
     Route: 065
  11. HYDROCHLOROTHIAZIDE. [Concomitant]
     Active Substance: HYDROCHLOROTHIAZIDE
     Route: 065
  12. ASPIRIN. [Suspect]
     Active Substance: ASPIRIN
     Route: 048
  13. PREVACID [Concomitant]
     Active Substance: LANSOPRAZOLE
     Route: 065

REACTIONS (8)
  - Nausea [Unknown]
  - Intentional self-injury [Unknown]
  - Vomiting [Unknown]
  - Rash pruritic [Recovered/Resolved]
  - Anaemia [Unknown]
  - Epistaxis [Unknown]
  - Increased tendency to bruise [Unknown]
  - Dyspnoea [Recovered/Resolved]

NARRATIVE: CASE EVENT DATE: 201203
